FAERS Safety Report 9034914 (Version 1)
Quarter: 2013Q1

REPORT INFORMATION
  Report Type: Spontaneous
  Country: FR (occurrence: None)
  Receive Date: 20130116
  Receipt Date: 20130116
  Transmission Date: 20140127
  Serious: Yes (Hospitalization)
  Sender: FDA-Public Use
  Company Number: 219982

PATIENT
  Age: 67 Year
  Sex: Female

DRUGS (14)
  1. INNOHEP (TINZAPARIN SODIUM) [Suspect]
     Indication: PRODUCT USED FOR UNKNOWN INDICATION
     Dosage: INJECTION
     Route: 042
     Dates: start: 20120912
  2. ENALAPRIL [Suspect]
     Indication: PRODUCT USED FOR UNKNOWN INDICATION
     Route: 048
     Dates: start: 20120912
  3. BACTRIM FORTE [Suspect]
     Indication: PRODUCT USED FOR UNKNOWN INDICATION
     Dates: start: 20120921, end: 20121001
  4. CORTANCYL (PREDNISONE) [Concomitant]
  5. LYSANXIA (PRAZEPAM) [Concomitant]
  6. ATARAX (HYDROXYZINE) [Concomitant]
  7. MONOTIDIEM (DILTIAZEM) [Concomitant]
  8. NPLATE (ROMIPLOSTIN) [Concomitant]
  9. VICTOZA (LIRAGLUTIDE) [Concomitant]
  10. PROZAC (FLUOXETINE) [Concomitant]
  11. DAFAGAN (PARAETAMOL) [Concomitant]
  12. GLUCOPHAGE (METFORMIN) [Concomitant]
  13. COUMADINE (WARFARIN SODIUM) [Concomitant]
  14. KAYEXALATE (SODIUM POLYSTYRENE SULFINATE) [Concomitant]

REACTIONS (4)
  - Hyperkalaemia [None]
  - Creatinine renal clearance decreased [None]
  - Hyponatraemia [None]
  - Drug interaction [None]
